FAERS Safety Report 7462214-6 (Version None)
Quarter: 2011Q2

REPORT INFORMATION
  Report Type: 
  Country: None (occurrence: None)
  Receive Date: 20110506
  Receipt Date: 20080121
  Transmission Date: 20111010
  Serious: Yes (Death, Hospitalization, Other)
  Sender: FDA-Public Use
  Company Number: US-BAYER-200812023NA

PATIENT
  Sex: Female
  Weight: 57 kg

DRUGS (15)
  1. REGULAR INSULIN [Concomitant]
     Dosage: SLIDING SCALE
     Route: 058
     Dates: start: 20061004
  2. HYDROCHLOROTHIAZIDE [Concomitant]
     Dosage: 25 MG DAILY
     Route: 048
  3. METOPROLOL [Concomitant]
     Dosage: 100 MG TWICE A DAY
     Route: 048
     Dates: end: 20061004
  4. CARDIOPLEGIA [Concomitant]
     Dosage: PRIME
     Dates: start: 20061005, end: 20061005
  5. TRASYLOL [Suspect]
     Indication: CORONARY ARTERY BYPASS
     Dosage: 200 CC
     Route: 042
     Dates: start: 20061005, end: 20061005
  6. WHOLE BLOOD [Concomitant]
     Dosage: 2 UNITS
     Route: 042
     Dates: start: 20061005
  7. HEPARIN [Concomitant]
     Dosage: 5000
     Route: 042
     Dates: start: 20000905, end: 20060905
  8. NORVASC [Concomitant]
     Dosage: 10MG DAILY
     Dates: end: 20061004
  9. ASPIRIN [Concomitant]
     Dosage: 81MG  DAILY
     Route: 048
  10. HYDRALAZINE HCL [Concomitant]
     Dosage: 10 MG THREE TIMES A DAY
     Route: 048
     Dates: start: 20060901
  11. VICODIN [Concomitant]
     Dosage: 1 TABLET
     Route: 048
     Dates: start: 20061004
  12. GLIPIZIDE [Concomitant]
     Dosage: 10 MG DAILY
     Dates: end: 20061004
  13. LOVENOX [Concomitant]
     Dosage: 50 MG TWICE DAILY
     Route: 042
     Dates: start: 20061004, end: 20061004
  14. LISINOPRIL [Concomitant]
     Dosage: 10MG DAILY
     Dates: end: 20061004
  15. MORPHINE [Concomitant]
     Dosage: 5 MG
     Route: 030
     Dates: start: 20061005, end: 20061010

REACTIONS (10)
  - ADVERSE EVENT [None]
  - RENAL FAILURE [None]
  - EMOTIONAL DISTRESS [None]
  - FEAR [None]
  - PAIN [None]
  - DEATH [None]
  - INJURY [None]
  - DEPRESSION [None]
  - ANXIETY [None]
  - ANHEDONIA [None]
